FAERS Safety Report 8303401-4 (Version None)
Quarter: 2012Q2

REPORT INFORMATION
  Report Type: 
  Country: None (occurrence: None)
  Receive Date: 20120423
  Receipt Date: 20120417
  Transmission Date: 20120825
  Serious: No
  Sender: FDA-Public Use
  Company Number: US-B.I. PHARMACEUTICALS,INC./RIDGEFIELD-2012-BP-07270BP

PATIENT
  Sex: Male

DRUGS (2)
  1. SPIRIVA [Suspect]
  2. ADVAIR DISKUS 100/50 [Concomitant]

REACTIONS (1)
  - CHEST DISCOMFORT [None]
